FAERS Safety Report 9314404 (Version 1)
Quarter: 2013Q2

REPORT INFORMATION
  Report Type: Spontaneous
  Country: US (occurrence: None)
  Receive Date: 20130524
  Receipt Date: 20130524
  Transmission Date: 20140414
  Serious: Yes (Life-Threatening)
  Sender: FDA-Public Use
  Company Number: None

PATIENT
  Age: 57 Year
  Sex: Male
  Weight: 90.72 kg

DRUGS (1)
  1. WARFARIN SODIUM [Suspect]
     Indication: THROMBOSIS
     Dates: start: 20130411, end: 20130423

REACTIONS (4)
  - Pulmonary embolism [None]
  - International normalised ratio fluctuation [None]
  - Product quality issue [None]
  - Product substitution issue [None]
